FAERS Safety Report 6970790-2 (Version None)
Quarter: 2010Q3

REPORT INFORMATION
  Report Type: 
  Country: None (occurrence: None)
  Receive Date: 20100908
  Receipt Date: 20100901
  Transmission Date: 20110219
  Serious: Yes (Death, Disabling, Other)
  Sender: FDA-Public Use
  Company Number: A0878923A

PATIENT
  Age: 76 Year
  Sex: Female

DRUGS (3)
  1. LAMICTAL [Suspect]
     Dosage: 100MG TWICE PER DAY
     Route: 048
     Dates: start: 20100401, end: 20100827
  2. AGGRENOX [Concomitant]
  3. MEBARAL [Concomitant]

REACTIONS (1)
  - CEREBROVASCULAR ACCIDENT [None]
